FAERS Safety Report 20204824 (Version 1)
Quarter: 2021Q4

REPORT INFORMATION
  Report Type: Spontaneous
  Country: US (occurrence: US)
  Receive Date: 20211220
  Receipt Date: 20211220
  Transmission Date: 20220303
  Serious: No
  Sender: FDA-Public Use
  Company Number: US-TEVA-2021-US-1985921

PATIENT
  Age: 58 Year
  Sex: Male

DRUGS (3)
  1. CLONIDINE HYDROCHLORIDE [Suspect]
     Active Substance: CLONIDINE HYDROCHLORIDE
     Indication: Hypertension
     Dosage: 0.1MG/DAY
     Route: 062
     Dates: start: 20210301
  2. CLONIDINE HYDROCHLORIDE [Suspect]
     Active Substance: CLONIDINE HYDROCHLORIDE
     Dosage: 0.2MG/DAY
     Route: 062
     Dates: start: 20210501
  3. CLONIDINE HYDROCHLORIDE [Suspect]
     Active Substance: CLONIDINE HYDROCHLORIDE
     Dosage: 0.3MG/DAY
     Route: 062
     Dates: start: 20211101

REACTIONS (2)
  - Product adhesion issue [Unknown]
  - Drug ineffective [Unknown]
